FAERS Safety Report 8505070-7 (Version None)
Quarter: 2012Q3

REPORT INFORMATION
  Report Type: 
  Country: None (occurrence: None)
  Receive Date: 20120712
  Receipt Date: 20120709
  Transmission Date: 20120928
  Serious: Yes (Hospitalization)
  Sender: FDA-Public Use
  Company Number: US-AMGEN-USASP2012019054

PATIENT
  Age: 46 Year
  Sex: Male

DRUGS (19)
  1. RITUXAN [Suspect]
     Dosage: 698 MG, UNK
     Route: 042
     Dates: start: 20120502
  2. MESNA [Suspect]
     Indication: NON-HODGKIN'S LYMPHOMA
     Dosage: 1116 MG, UNK
  3. MS CONTIN [Concomitant]
  4. VALTREX [Concomitant]
  5. OMEPRAZOLE [Concomitant]
  6. CYCLOPHOSPHAMIDE [Suspect]
     Dosage: 446 MG, UNK
     Route: 042
  7. DOXORUBICIN HCL [Suspect]
     Indication: NON-HODGKIN'S LYMPHOMA
     Dosage: 56.5 MG, UNK
     Route: 042
     Dates: start: 20120217, end: 20120222
  8. PEGFILGRASTIM [Suspect]
     Indication: NON-HODGKIN'S LYMPHOMA
     Dosage: 6 MG, UNK
     Route: 058
  9. CIPROFLOXACIN [Concomitant]
  10. MORPHINE SULFATE [Concomitant]
  11. CYCLOPHOSPHAMIDE [Suspect]
     Indication: NON-HODGKIN'S LYMPHOMA
     Dosage: 630 MG, Q12H
     Route: 042
     Dates: start: 20120217, end: 20120222
  12. VINCRISTINE SULFATE [Suspect]
     Indication: NON-HODGKIN'S LYMPHOMA
     Dosage: 2 MG, UNK
     Route: 042
     Dates: start: 20120217
  13. ENOXAPARIN                         /01708202/ [Concomitant]
  14. COMPAZINE [Concomitant]
  15. DOXORUBICIN HCL [Suspect]
     Dosage: 37 MG, UNK
     Route: 042
  16. DEXAMETHASONE [Suspect]
     Indication: NON-HODGKIN'S LYMPHOMA
     Dosage: 40 MG, UNK
     Route: 048
     Dates: start: 20120217
  17. FLUCONAZOLE [Concomitant]
  18. RITUXAN [Suspect]
     Indication: NON-HODGKIN'S LYMPHOMA
     Dosage: 787.5 MG, UNK
     Route: 042
     Dates: start: 20120217, end: 20120222
  19. METOPROLOL TARTRATE [Concomitant]

REACTIONS (2)
  - DEEP VEIN THROMBOSIS [None]
  - FEBRILE NEUTROPENIA [None]
